FAERS Safety Report 7809438-3 (Version None)
Quarter: 2011Q4

REPORT INFORMATION
  Report Type: 
  Country: None (occurrence: None)
  Receive Date: 20111012
  Receipt Date: 20111007
  Transmission Date: 20120403
  Serious: No
  Sender: FDA-Public Use
  Company Number: US-B.I. PHARMACEUTICALS,INC./RIDGEFIELD-2011-BP-21949BP

PATIENT
  Sex: Male

DRUGS (10)
  1. PRADAXA [Suspect]
     Indication: CARDIAC FAILURE CONGESTIVE
  2. PRADAXA [Suspect]
     Indication: ATRIAL FIBRILLATION
     Dosage: 300 MG
     Route: 048
     Dates: start: 20110810
  3. HUMALOG [Concomitant]
     Indication: DIABETES MELLITUS
     Dates: start: 19990101
  4. LIPITOR [Concomitant]
     Indication: BLOOD CHOLESTEROL INCREASED
     Dates: start: 20060101
  5. LISINOPRIL [Concomitant]
     Indication: HYPERTENSION
     Dosage: 40 MG
     Dates: start: 19990101
  6. COREG [Concomitant]
     Indication: BLOOD CHOLESTEROL INCREASED
     Dosage: 12.5 MG
     Dates: start: 20060101
  7. FUROSEMIDE [Concomitant]
     Indication: CARDIAC FAILURE CONGESTIVE
     Dates: start: 20060101
  8. KLOR-CON [Concomitant]
     Indication: CARDIAC FAILURE CONGESTIVE
     Dates: start: 20060101
  9. MIRAPEX [Concomitant]
     Indication: MUSCLE SPASMS
     Dosage: 50 MG
  10. TRIAMTERENE AND HYDROCHLOROTHIAZIDE [Concomitant]

REACTIONS (3)
  - MELAENA [None]
  - BACK PAIN [None]
  - DIARRHOEA [None]
